FAERS Safety Report 24964837 (Version 1)
Quarter: 2025Q1

REPORT INFORMATION
  Report Type: Spontaneous
  Country: US (occurrence: None)
  Receive Date: 20250212
  Receipt Date: 20250212
  Transmission Date: 20250409
  Serious: Yes (Other)
  Sender: FDA-CTU
  Company Number: None

PATIENT
  Age: 73 Year
  Sex: Male

DRUGS (1)
  1. SKYRIZI [Suspect]
     Active Substance: RISANKIZUMAB-RZAA
     Indication: Product use in unapproved indication

REACTIONS (5)
  - Cough [None]
  - Nasal congestion [None]
  - Rhinorrhoea [None]
  - Skin discolouration [None]
  - Pruritus [None]
